FAERS Safety Report 9753712 (Version 2)
Quarter: 2015Q3

REPORT INFORMATION
  Report Type: Spontaneous
  Country: US (occurrence: US)
  Receive Date: 20131213
  Receipt Date: 20150805
  Transmission Date: 20151125
  Serious: No
  Sender: FDA-Public Use
  Company Number: US-GILEAD-2009-0026190

PATIENT
  Age: 75 Year
  Sex: Female
  Weight: 55.79 kg

DRUGS (20)
  1. DIGOXIN. [Concomitant]
     Active Substance: DIGOXIN
  2. CRESTOR [Concomitant]
     Active Substance: ROSUVASTATIN CALCIUM
  3. OSCAL [Concomitant]
     Active Substance: CALCIUM CARBONATE
  4. HYDROCODONE [Concomitant]
     Active Substance: HYDROCODONE
  5. CENTRUM SILVER [Concomitant]
     Active Substance: VITAMINS
  6. BENADRYL [Concomitant]
     Active Substance: DIPHENHYDRAMINE HYDROCHLORIDE
  7. ALLOPURINOL. [Concomitant]
     Active Substance: ALLOPURINOL
  8. VENTAVIS [Concomitant]
     Active Substance: ILOPROST
  9. LEVAQUIN [Concomitant]
     Active Substance: LEVOFLOXACIN
  10. HYDROCHLOROTHIAZIDE/OLMESARTAN MEDOXOMIL [Concomitant]
  11. ATENOLOL. [Concomitant]
     Active Substance: ATENOLOL
  12. PREDNISONE. [Concomitant]
     Active Substance: PREDNISONE
  13. REVATIO [Concomitant]
     Active Substance: SILDENAFIL CITRATE
  14. CLINDAMYCIN HCL [Concomitant]
     Active Substance: CLINDAMYCIN HYDROCHLORIDE
  15. BENAZEPRIL HCL [Concomitant]
     Active Substance: BENAZEPRIL HYDROCHLORIDE
  16. AMLODIPINE BESYLATE. [Concomitant]
     Active Substance: AMLODIPINE BESYLATE
  17. OXYGEN. [Concomitant]
     Active Substance: OXYGEN
  18. LETAIRIS [Suspect]
     Active Substance: AMBRISENTAN
     Indication: PULMONARY ARTERIAL HYPERTENSION
     Route: 048
     Dates: start: 20080225
  19. ECOTRIN [Concomitant]
     Active Substance: ASPIRIN
  20. PREMARIN [Concomitant]
     Active Substance: ESTROGENS, CONJUGATED

REACTIONS (1)
  - Dysphonia [Unknown]
